FAERS Safety Report 8496541-0 (Version None)
Quarter: 2012Q3

REPORT INFORMATION
  Report Type: 
  Country: None (occurrence: None)
  Receive Date: 20120709
  Receipt Date: 20120703
  Transmission Date: 20120928
  Serious: Yes (Death, Other)
  Sender: FDA-Public Use
  Company Number: US-ELI_LILLY_AND_COMPANY-US201207001312

PATIENT
  Age: 68 Year
  Sex: Male

DRUGS (2)
  1. CARBOPLATIN [Concomitant]
     Dosage: 670 MG IN 250CC NS FOR 60 MINUTES
  2. GEMZAR [Suspect]
     Indication: BLADDER CANCER
     Dosage: 1900 MG IN 250CC NS FOR 60 MINUTES
     Dates: start: 20110707

REACTIONS (3)
  - PENILE SWELLING [None]
  - DEATH [None]
  - DEEP VEIN THROMBOSIS [None]
